FAERS Safety Report 6413047-0 (Version None)
Quarter: 2009Q4

REPORT INFORMATION
  Report Type: 
  Country: None (occurrence: None)
  Receive Date: 20091023
  Receipt Date: 20091023
  Transmission Date: 20100525
  Serious: Yes (Hospitalization)
  Sender: FDA-Public Use
  Company Number: None

PATIENT
  Sex: Female
  Weight: 52.1637 kg

DRUGS (2)
  1. VYVANSE [Suspect]
     Indication: ATTENTION DEFICIT/HYPERACTIVITY DISORDER
     Dosage: 70 MG 047
  2. SPRING VALLEY PRENATAL VITAMIN [Suspect]
     Indication: VITAMIN SUPPLEMENTATION
     Dosage: ONCE A DAY 047
     Dates: start: 20091001, end: 20091004

REACTIONS (1)
  - URTICARIA [None]
